FAERS Safety Report 24704044 (Version 1)
Quarter: 2024Q4

REPORT INFORMATION
  Report Type: Spontaneous
  Country: US (occurrence: US)
  Receive Date: 20241206
  Receipt Date: 20241206
  Transmission Date: 20250114
  Serious: No
  Sender: TENSHI KAIZEN PRIVATE LIMITED
  Company Number: US-TENSHI KAIZEN PRIVATE LIMITED-2024TK000079

PATIENT
  Age: 47 Year
  Sex: Female
  Weight: 117.9 kg

DRUGS (3)
  1. LORATADINE [Suspect]
     Active Substance: LORATADINE
     Indication: Hypersensitivity
     Dosage: 1 TABLET DAILY
     Route: 048
     Dates: start: 20240829
  2. METFORMIN [Concomitant]
     Active Substance: METFORMIN HYDROCHLORIDE
     Indication: Product used for unknown indication
     Dosage: UNK
     Route: 065
  3. LORATADINE [Concomitant]
     Active Substance: LORATADINE
     Indication: Hypersensitivity
     Dosage: UNK, FOR 5 YEARS
     Route: 065

REACTIONS (5)
  - Drug ineffective [Unknown]
  - Product use complaint [Unknown]
  - Product physical issue [Unknown]
  - Incorrect dose administered [Unknown]
  - Product after taste [Unknown]

NARRATIVE: CASE EVENT DATE: 20240829
